FAERS Safety Report 19840808 (Version 1)
Quarter: 2021Q3

REPORT INFORMATION
  Report Type: Spontaneous
  Country: DE (occurrence: DE)
  Receive Date: 20210916
  Receipt Date: 20210916
  Transmission Date: 20211014
  Serious: Yes (Other)
  Sender: FDA-Public Use
  Company Number: DE-ORGANON-2101DEU011303

PATIENT
  Age: 55 Year
  Sex: Male
  Weight: 131 kg

DRUGS (4)
  1. ROSUVASTATIN. [Suspect]
     Active Substance: ROSUVASTATIN
     Indication: CORONARY ARTERY DISEASE
     Dosage: 20 MILLIGRAM, QD; (DAILY DOSE: 20 MG MILLGRAM(S) EVERY DAYS)
     Route: 048
     Dates: start: 201901, end: 202001
  2. REPATHA [Suspect]
     Active Substance: EVOLOCUMAB
     Indication: CORONARY ARTERY DISEASE
     Dosage: 1 DOSAGE FORM; FREQUENCY: 14 DAYS (DAILY DOSE: 1 DF DOSAGE FORM EVERY 14 DAYS)
     Route: 058
     Dates: start: 202005, end: 202010
  3. INEGY 10 MG/40 MG TABLETTEN [Suspect]
     Active Substance: EZETIMIBE\SIMVASTATIN
     Indication: CORONARY ARTERY DISEASE
     Dosage: 1 DOSAGE FORM, QD; (DAILY DOSE: 1 DF DOSAGE FORM EVERY DAYS)
     Route: 048
     Dates: start: 2016, end: 2019
  4. ATORVASTATIN [Suspect]
     Active Substance: ATORVASTATIN
     Indication: CORONARY ARTERY DISEASE
     Dosage: 10 MILLIGRAM, QD (DAILY DOSE: 10 MG MILLGRAM(S) EVERY DAYS)
     Route: 048
     Dates: start: 2010, end: 2016

REACTIONS (4)
  - Myalgia [Not Recovered/Not Resolved]
  - Arthralgia [Not Recovered/Not Resolved]
  - Rash [Not Recovered/Not Resolved]
  - Furuncle [Not Recovered/Not Resolved]
